FAERS Safety Report 5609814-3 (Version None)
Quarter: 2008Q1

REPORT INFORMATION
  Report Type: 
  Country: None (occurrence: None)
  Receive Date: 20080111
  Receipt Date: 20070102
  Transmission Date: 20080703
  Serious: Yes (Other)
  Sender: FDA-Public Use
  Company Number: HQWYE468106NOV06

PATIENT
  Age: 51 Year
  Sex: Female

DRUGS (1)
  1. PREMPRO [Suspect]
     Dosage: 0.45/1.5MG AT AN UNKNOWN FREQUENCY, ORAL
     Route: 048
     Dates: start: 20050901, end: 20060901

REACTIONS (1)
  - ENDOMETRIAL CANCER [None]
